FAERS Safety Report 19349236 (Version 1)
Quarter: 2021Q2

REPORT INFORMATION
  Report Type: Spontaneous
  Country: US (occurrence: US)
  Receive Date: 20210529
  Receipt Date: 20210529
  Transmission Date: 20210717
  Serious: Yes (Disabling)
  Sender: FDA-Public Use
  Company Number: None

PATIENT
  Age: 57 Year
  Sex: Female
  Weight: 49.5 kg

DRUGS (10)
  1. RALOXIFENE. [Concomitant]
     Active Substance: RALOXIFENE
  2. ESTRADIOL (PATCH) [Concomitant]
     Active Substance: ESTRADIOL
  3. VITAMIN D3 [Concomitant]
     Active Substance: CHOLECALCIFEROL
  4. DIAZEPAM. [Concomitant]
     Active Substance: DIAZEPAM
  5. HEARING AIDS BOTH EARS [Concomitant]
  6. COCHLEAR IMPLANT LEFT EAR [Concomitant]
  7. AMITRIPTYLINE [Concomitant]
     Active Substance: AMITRIPTYLINE
  8. CALCIUM CARBONATE. [Concomitant]
     Active Substance: CALCIUM CARBONATE
  9. ELMIRON [Suspect]
     Active Substance: PENTOSAN POLYSULFATE SODIUM
     Indication: CYSTITIS INTERSTITIAL
  10. GAMUNEX?C [Concomitant]
     Active Substance: HUMAN IMMUNOGLOBULIN G

REACTIONS (4)
  - Maculopathy [None]
  - Capillary leak syndrome [None]
  - Blindness [None]
  - Retinal injury [None]

NARRATIVE: CASE EVENT DATE: 20200909
